FAERS Safety Report 8435946-0 (Version None)
Quarter: 2012Q2

REPORT INFORMATION
  Report Type: 
  Country: None (occurrence: None)
  Receive Date: 20120607
  Receipt Date: 20120607
  Transmission Date: 20120825
  Serious: No
  Sender: FDA-Public Use
  Company Number: None

PATIENT
  Age: 60 Year
  Sex: Female
  Weight: 93.441 kg

DRUGS (1)
  1. LISINOPRIL [Suspect]
     Indication: PROTEINURIA
     Dosage: 1 TABLET DAILY PO
     Route: 048
     Dates: start: 20060501, end: 20080501

REACTIONS (1)
  - COUGH [None]
